FAERS Safety Report 11590833 (Version 1)
Quarter: 2015Q4

REPORT INFORMATION
  Report Type: Spontaneous
  Country: US (occurrence: US)
  Receive Date: 20151002
  Receipt Date: 20151002
  Transmission Date: 20160304
  Serious: Yes (Other)
  Sender: FDA-Public Use
  Company Number: US-ASTRAZENECA-2015SE93617

PATIENT
  Sex: Male

DRUGS (3)
  1. ALBUTEROL NEBULIZER [Concomitant]
     Active Substance: ALBUTEROL
     Route: 055
  2. SYMBICORT [Suspect]
     Active Substance: BUDESONIDE\FORMOTEROL FUMARATE DIHYDRATE
     Indication: CHRONIC OBSTRUCTIVE PULMONARY DISEASE
     Dosage: 160/4.5 MCG 2 PUFFS TWICE DAILY
     Route: 055
  3. SPIRIVA CP HANDHELD INHALER [Concomitant]

REACTIONS (5)
  - Suffocation feeling [Unknown]
  - Lung disorder [Unknown]
  - Pneumonia [Unknown]
  - Rhinorrhoea [Unknown]
  - Activities of daily living impaired [Unknown]
